FAERS Safety Report 7806927-2 (Version None)
Quarter: 2011Q4

REPORT INFORMATION
  Report Type: 
  Country: None (occurrence: None)
  Receive Date: 20111011
  Receipt Date: 20110113
  Transmission Date: 20120403
  Serious: No
  Sender: FDA-Public Use
  Company Number: US-MYLANLABS-2010S1023342

PATIENT
  Age: 69 Year
  Sex: Female

DRUGS (10)
  1. M.V.I. [Concomitant]
  2. GLUCOSAMINE + CHONDROITIN /01625901/ [Concomitant]
     Dosage: 500/400
  3. VITAMIN B COMPLEX CAP [Concomitant]
  4. MIDODRINE HYDROCHLORIDE [Suspect]
     Indication: SYNCOPE
     Route: 048
     Dates: start: 20101126
  5. OSCAL D /00944201/ [Concomitant]
  6. MIDODRINE HYDROCHLORIDE [Suspect]
     Route: 048
     Dates: start: 20101201, end: 20110103
  7. MIDODRINE HYDROCHLORIDE [Suspect]
     Route: 048
     Dates: start: 20101201, end: 20110103
  8. FLUDROCORTISONE ACETATE [Concomitant]
     Indication: HYPOTENSION
  9. VITAMIN E [Concomitant]
  10. MIDODRINE HYDROCHLORIDE [Suspect]
     Indication: HYPOTENSION
     Route: 048
     Dates: start: 20101126

REACTIONS (3)
  - FLATULENCE [None]
  - ABDOMINAL PAIN UPPER [None]
  - DIARRHOEA [None]
